FAERS Safety Report 16782489 (Version 1)
Quarter: 2019Q3

REPORT INFORMATION
  Report Type: Spontaneous
  Country: PT (occurrence: PT)
  Receive Date: 20190906
  Receipt Date: 20190906
  Transmission Date: 20191005
  Serious: Yes (Life-Threatening, Hospitalization, Other)
  Sender: FDA-Public Use
  Company Number: PT-MYLANLABS-2019M1083802

PATIENT
  Age: 38 Year
  Sex: Female

DRUGS (9)
  1. AMOXICILLIN/CLAVULANIC ACID [Suspect]
     Active Substance: AMOXICILLIN\CLAVULANIC ACID
     Indication: PNEUMONIA
     Dosage: UNK
     Route: 065
  2. ACETAMINOPHEN. [Suspect]
     Active Substance: ACETAMINOPHEN
     Dosage: 5 MILLIGRAM, QD
     Route: 065
  3. CODEINE [Suspect]
     Active Substance: CODEINE
     Dosage: 900 GRAM (OVERDOSE)
  4. ALPRAZOLAM. [Suspect]
     Active Substance: ALPRAZOLAM
     Dosage: 40 MILLIGRAM (OVERDOSE)
  5. QUETIAPINE. [Suspect]
     Active Substance: QUETIAPINE
     Indication: PRODUCT USED FOR UNKNOWN INDICATION
     Dosage: 9 GRAM (OVERDOSE)
     Route: 065
  6. CODEINE [Suspect]
     Active Substance: CODEINE
     Indication: PRODUCT USED FOR UNKNOWN INDICATION
     Dosage: 300 MILLIGRAM, QD
     Route: 065
  7. VENLAFAXINE [Suspect]
     Active Substance: VENLAFAXINE HYDROCHLORIDE
     Indication: PRODUCT USED FOR UNKNOWN INDICATION
     Dosage: 3 GRAM (OVERDOSE)
     Route: 065
  8. ALPRAZOLAM. [Suspect]
     Active Substance: ALPRAZOLAM
     Indication: PRODUCT USED FOR UNKNOWN INDICATION
     Dosage: 20 MILLIGRAM, QD
     Route: 065
  9. ACETAMINOPHEN. [Suspect]
     Active Substance: ACETAMINOPHEN
     Indication: PRODUCT USED FOR UNKNOWN INDICATION
     Dosage: 15 GRAM (OVERDOSE)
     Route: 065

REACTIONS (14)
  - Delirium [Unknown]
  - Intentional overdose [Unknown]
  - Renal papillary necrosis [Unknown]
  - Respiratory disorder [Unknown]
  - Dependence [Unknown]
  - Drug abuse [Unknown]
  - Neurological symptom [Unknown]
  - Liver injury [Unknown]
  - Multiple organ dysfunction syndrome [Unknown]
  - Cardiac dysfunction [Unknown]
  - Coma [Unknown]
  - Vocal cord paralysis [Unknown]
  - Distributive shock [Unknown]
  - Agitation [Unknown]
